FAERS Safety Report 4909410-7 (Version None)
Quarter: 2006Q1

REPORT INFORMATION
  Report Type: 
  Country: None (occurrence: None)
  Receive Date: 20060213
  Receipt Date: 20060203
  Transmission Date: 20060701
  Serious: Yes (Other)
  Sender: FDA-Public Use
  Company Number: PHBS2006NZ01855

PATIENT
  Age: 45 Year
  Sex: Female

DRUGS (2)
  1. RITALIN [Suspect]
     Indication: DEPRESSION
     Dates: end: 20051001
  2. VENLAFAXINE HCL [Concomitant]
     Indication: DEPRESSION

REACTIONS (5)
  - GRANULOMATOUS LIVER DISEASE [None]
  - HYPERHIDROSIS [None]
  - MALAISE [None]
  - PYREXIA [None]
  - WEIGHT DECREASED [None]
